FAERS Safety Report 4988546-9 (Version None)
Quarter: 2006Q2

REPORT INFORMATION
  Report Type: 
  Country: None (occurrence: None)
  Receive Date: 20060502
  Receipt Date: 20060501
  Transmission Date: 20061013
  Serious: Yes (Other)
  Sender: FDA-Public Use
  Company Number: US-GLAXOSMITHKLINE-A0603882A

PATIENT
  Sex: Female

DRUGS (2)
  1. PAXIL [Suspect]
     Indication: DRUG USE FOR UNKNOWN INDICATION
     Route: 048
  2. COLD MEDICATION [Suspect]
     Indication: DRUG USE FOR UNKNOWN INDICATION
     Route: 065

REACTIONS (7)
  - BRAIN DAMAGE [None]
  - PARAESTHESIA [None]
  - PARALYSIS [None]
  - RESPIRATORY ARREST [None]
  - RESPIRATORY RATE DECREASED [None]
  - TREMOR [None]
  - VISUAL DISTURBANCE [None]
